FAERS Safety Report 9388039 (Version 2)
Quarter: 2013Q3

REPORT INFORMATION
  Report Type: Spontaneous
  Country: NL (occurrence: NL)
  Receive Date: 20130708
  Receipt Date: 20130712
  Transmission Date: 20140515
  Serious: Yes (Other)
  Sender: FDA-Public Use
  Company Number: NL-VERTEX PHARMACEUTICALS INC-2013-007748

PATIENT
  Age: 63 Year
  Sex: Male

DRUGS (6)
  1. INCIVO [Suspect]
     Indication: PRODUCT USED FOR UNKNOWN INDICATION
     Dosage: TABLET
     Route: 065
     Dates: start: 20130429, end: 20130507
  2. PEGINTERFERON ALFA [Suspect]
     Indication: PRODUCT USED FOR UNKNOWN INDICATION
     Dosage: DOSAGE FORM: UNKNOWN
     Route: 065
     Dates: start: 20130429, end: 20130507
  3. RIBAVIRIN [Suspect]
     Indication: PRODUCT USED FOR UNKNOWN INDICATION
     Dosage: DOSAGE FORM: UNKNOWN
     Route: 065
     Dates: start: 20130429, end: 20130507
  4. RIVOTRIL [Concomitant]
  5. PROMETHAZINE [Concomitant]
  6. METHADON [Concomitant]

REACTIONS (2)
  - Hepatic cirrhosis [Recovered/Resolved]
  - Pneumonia [Unknown]
